FAERS Safety Report 6149125-3 (Version None)
Quarter: 2009Q2

REPORT INFORMATION
  Report Type: 
  Country: None (occurrence: None)
  Receive Date: 20090407
  Receipt Date: 20090324
  Transmission Date: 20091009
  Serious: Yes (Life-Threatening)
  Sender: FDA-Public Use
  Company Number: 2009TJ0073

PATIENT
  Age: 59 Year
  Sex: Female

DRUGS (1)
  1. TWINJECT (EPHINEPHRINE INJECTION) [Suspect]
     Indication: ANAPHYLACTIC REACTION
     Dosage: 0.3, AS NEEDED
     Dates: start: 20090320, end: 20090320

REACTIONS (2)
  - DEVICE FAILURE [None]
  - INJECTION SITE HAEMATOMA [None]
